FAERS Safety Report 21650346 (Version 3)
Quarter: 2023Q2

REPORT INFORMATION
  Report Type: Spontaneous
  Country: US (occurrence: US)
  Receive Date: 20221128
  Receipt Date: 20230615
  Transmission Date: 20230722
  Serious: No
  Sender: FDA-Public Use
  Company Number: US-PFIZER INC-2021061847

PATIENT
  Age: 81 Year
  Sex: Female

DRUGS (1)
  1. EUCRISA [Suspect]
     Active Substance: CRISABOROLE
     Indication: Dermatitis atopic
     Dosage: 1 G, 2X/DAY (AFFECTED AREAS ONLY ON FACE TWICE DAILY PRN)
     Route: 061

REACTIONS (2)
  - Illness [Unknown]
  - Stress [Unknown]
